FAERS Safety Report 6679303-6 (Version None)
Quarter: 2010Q2

REPORT INFORMATION
  Report Type: 
  Country: None (occurrence: None)
  Receive Date: 20100413
  Receipt Date: 20100401
  Transmission Date: 20101027
  Serious: Yes (Other)
  Sender: FDA-Public Use
  Company Number: US-PFIZER INC-2010042461

PATIENT
  Sex: Female
  Weight: 50.7 kg

DRUGS (6)
  1. NEURONTIN [Suspect]
     Indication: NEUROPATHY PERIPHERAL
     Dosage: 300 MG, 3X/DAY
     Route: 048
     Dates: start: 20091101
  2. ATIVAN [Concomitant]
     Indication: ANXIETY
     Dosage: 2 MG, 2X/DAY
     Route: 048
  3. IBUPROFEN [Concomitant]
     Indication: INFLAMMATION
     Dosage: 80 MG, 3X/DAY
     Route: 048
  4. IBUPROFEN [Concomitant]
     Indication: PAIN
  5. REMERON [Concomitant]
     Indication: SLEEP DISORDER
     Dosage: 45 MG, 1X/DAY
     Route: 048
  6. PHENERGAN ^AVENTIS PHARMA^ [Concomitant]
     Indication: GASTRIC DISORDER
     Dosage: AS NEEDED
     Route: 048

REACTIONS (3)
  - CHEST DISCOMFORT [None]
  - NEURALGIA [None]
  - VISION BLURRED [None]
